FAERS Safety Report 8397917-2 (Version None)
Quarter: 2012Q2

REPORT INFORMATION
  Report Type: 
  Country: None (occurrence: None)
  Receive Date: 20120531
  Receipt Date: 20120524
  Transmission Date: 20120825
  Serious: Yes (Hospitalization, Disabling)
  Sender: FDA-Public Use
  Company Number: PHHY2012BR031438

PATIENT
  Sex: Female
  Weight: 77 kg

DRUGS (1)
  1. FORMOTEROL FUMARATE [Suspect]
     Indication: EMPHYSEMA
     Dosage: 2 DF, BID

REACTIONS (4)
  - FATIGUE [None]
  - DRUG INEFFECTIVE [None]
  - GAIT DISTURBANCE [None]
  - DYSPNOEA [None]
